FAERS Safety Report 5947872-7 (Version None)
Quarter: 2008Q4

REPORT INFORMATION
  Report Type: 
  Country: None (occurrence: None)
  Receive Date: 20081111
  Receipt Date: 20081104
  Transmission Date: 20090506
  Serious: Yes (Other)
  Sender: FDA-Public Use
  Company Number: US-ALLERGAN-0813208US

PATIENT
  Sex: Female

DRUGS (5)
  1. COMBIGAN [Suspect]
     Indication: GLAUCOMA
     Dosage: 1 GTT, BID
     Route: 047
     Dates: start: 20081015
  2. COMBIGAN [Suspect]
     Dosage: 1 GTT, QHS
     Route: 047
  3. XALATAN [Concomitant]
     Indication: GLAUCOMA
     Route: 047
  4. ZOLOFT [Concomitant]
     Indication: DRUG USE FOR UNKNOWN INDICATION
     Dosage: UNK, QAM
     Route: 048
  5. SYNTHROID [Concomitant]
     Indication: HYPOTHYROIDISM
     Route: 048

REACTIONS (6)
  - ASTHENIA [None]
  - BODY TEMPERATURE DECREASED [None]
  - HYPOTENSION [None]
  - INFLUENZA [None]
  - LETHARGY [None]
  - OCULAR HYPERAEMIA [None]
